FAERS Safety Report 21139183 (Version 1)
Quarter: 2022Q3

REPORT INFORMATION
  Report Type: Spontaneous
  Country: US (occurrence: None)
  Receive Date: 20220727
  Receipt Date: 20220727
  Transmission Date: 20221027
  Serious: Yes (Disabling)
  Sender: FDA-Public Use
  Company Number: None

PATIENT
  Age: 79 Year
  Sex: Female
  Weight: 83.91 kg

DRUGS (8)
  1. REPATHA [Suspect]
     Active Substance: EVOLOCUMAB
     Indication: Blood cholesterol increased
     Dates: start: 20211110, end: 20211125
  2. LOSARTAN POTASSIUM [Concomitant]
     Active Substance: LOSARTAN POTASSIUM
  3. Lovthyroixine [Concomitant]
  4. General vitamin [Concomitant]
  5. VITAMIN B [Concomitant]
     Active Substance: VITAMIN B
  6. VITAMIN D NOS [Concomitant]
     Active Substance: VITAMIN D NOS
  7. KRILL OIL [Concomitant]
     Active Substance: DIETARY SUPPLEMENT\KRILL OIL
  8. Cal/Mg Zinc [Concomitant]

REACTIONS (6)
  - Dysstasia [None]
  - Muscle rigidity [None]
  - Feeling hot [None]
  - Hypoaesthesia [None]
  - Pain in extremity [None]
  - Back disorder [None]

NARRATIVE: CASE EVENT DATE: 20211101
